FAERS Safety Report 7308298-7 (Version None)
Quarter: 2011Q1

REPORT INFORMATION
  Report Type: 
  Country: None (occurrence: None)
  Receive Date: 20110223
  Receipt Date: 20110211
  Transmission Date: 20110831
  Serious: Yes (Death, Hospitalization)
  Sender: FDA-Public Use
  Company Number: A0905953A

PATIENT
  Sex: Male
  Weight: 54 kg

DRUGS (3)
  1. CAPECITABINE [Suspect]
     Indication: GASTRIC CANCER
     Dosage: 1700MGM2 TWICE PER DAY
     Route: 048
     Dates: start: 20100901, end: 20110105
  2. OXALIPLATIN [Suspect]
     Indication: GASTRIC CANCER
     Dosage: 130MGM2 CYCLIC
     Route: 042
     Dates: start: 20100901, end: 20101222
  3. LAPATINIB [Suspect]
     Indication: GASTRIC CANCER
     Dosage: 1250MG PER DAY
     Route: 048
     Dates: start: 20100901, end: 20110105

REACTIONS (1)
  - DIARRHOEA [None]
